FAERS Safety Report 14293113 (Version 2)
Quarter: 2017Q4

REPORT INFORMATION
  Report Type: Report from Study
  Country: DE (occurrence: DE)
  Receive Date: 20171215
  Receipt Date: 20171222
  Transmission Date: 20180321
  Serious: Yes (Hospitalization)
  Sender: FDA-Public Use
  Company Number: PHHY2017DE186027

PATIENT
  Sex: Male

DRUGS (2)
  1. MEDIKINET [Concomitant]
     Active Substance: METHYLPHENIDATE
     Indication: PRODUCT USED FOR UNKNOWN INDICATION
     Dosage: UNK
     Route: 065
     Dates: start: 2006
  2. OMNITROPE [Suspect]
     Active Substance: SOMATROPIN
     Indication: GROWTH HORMONE DEFICIENCY
     Dosage: QD (STRENGTH: 10 MG/1.5 ML)
     Route: 065
     Dates: start: 20080609

REACTIONS (2)
  - Depression [Recovering/Resolving]
  - Hyperkinesia [Recovering/Resolving]
